FAERS Safety Report 8141606-6 (Version None)
Quarter: 2012Q1

REPORT INFORMATION
  Report Type: 
  Country: None (occurrence: None)
  Receive Date: 20120216
  Receipt Date: 20120206
  Transmission Date: 20120608
  Serious: Yes (Hospitalization)
  Sender: FDA-Public Use
  Company Number: US-JNJFOC-20120204645

PATIENT
  Sex: Female
  Weight: 43.09 kg

DRUGS (4)
  1. METHOTREXATE [Concomitant]
     Indication: PSORIATIC ARTHROPATHY
     Route: 048
  2. MOBIC [Concomitant]
     Indication: INFLAMMATION
     Route: 048
  3. SIMPONI [Suspect]
     Indication: PSORIATIC ARTHROPATHY
     Route: 058
     Dates: start: 20100101
  4. PREDNISONE [Concomitant]
     Indication: PSORIATIC ARTHROPATHY
     Route: 048
     Dates: start: 20110101

REACTIONS (7)
  - DRUG INEFFECTIVE [None]
  - SPINAL DISORDER [None]
  - ANXIETY [None]
  - PSORIASIS [None]
  - CERVICAL VERTEBRAL FRACTURE [None]
  - HAND DEFORMITY [None]
  - MUSCLE SPASMS [None]
